FAERS Safety Report 14813214 (Version 1)
Quarter: 2018Q2

REPORT INFORMATION
  Report Type: Report from Study
  Country: US (occurrence: US)
  Receive Date: 20180426
  Receipt Date: 20180426
  Transmission Date: 20180711
  Serious: Yes (Other)
  Sender: FDA-Public Use
  Company Number: US-AEGERION PHARMACEUTICAL, INC-AEGR003596

PATIENT
  Age: 34 Year
  Sex: Female
  Weight: 111.57 kg

DRUGS (3)
  1. JUXTAPID [Suspect]
     Active Substance: LOMITAPIDE MESYLATE
     Dosage: 10 MG, QD
     Route: 048
  2. VICTOZA [Suspect]
     Active Substance: LIRAGLUTIDE
     Indication: PRODUCT USED FOR UNKNOWN INDICATION
  3. JUXTAPID [Suspect]
     Active Substance: LOMITAPIDE MESYLATE
     Indication: TYPE IIA HYPERLIPIDAEMIA
     Dosage: 5 MG, QD
     Route: 048
     Dates: start: 20160518

REACTIONS (8)
  - Constipation [Recovered/Resolved]
  - Nausea [Recovered/Resolved]
  - Dehydration [Unknown]
  - Abdominal distension [Unknown]
  - Gastrointestinal disorder [Recovered/Resolved]
  - Dizziness [Unknown]
  - Polyp [Unknown]
  - Flatulence [Unknown]

NARRATIVE: CASE EVENT DATE: 2018
